FAERS Safety Report 15361185 (Version 1)
Quarter: 2018Q3

REPORT INFORMATION
  Report Type: Spontaneous
  Country: US (occurrence: US)
  Receive Date: 20180907
  Receipt Date: 20180907
  Transmission Date: 20181010
  Serious: Yes (Hospitalization)
  Sender: FDA-Public Use
  Company Number: US-ROCHE-2176077

PATIENT
  Age: 71 Year
  Sex: Male
  Weight: 88.53 kg

DRUGS (2)
  1. ACTIVASE [Suspect]
     Active Substance: ALTEPLASE
     Indication: ISCHAEMIC STROKE
     Dosage: ONCE
     Route: 042
     Dates: start: 20180624, end: 20180624
  2. ACTIVASE [Suspect]
     Active Substance: ALTEPLASE
     Dosage: ONCE
     Route: 040
     Dates: start: 20180624

REACTIONS (6)
  - No adverse event [Unknown]
  - Facial paralysis [Unknown]
  - Subarachnoid haemorrhage [Recovered/Resolved]
  - Dysarthria [Unknown]
  - Wrong technique in device usage process [Unknown]
  - Haemorrhagic transformation stroke [Recovered/Resolved]

NARRATIVE: CASE EVENT DATE: 20180624
